FAERS Safety Report 10776610 (Version 1)
Quarter: 2015Q1

REPORT INFORMATION
  Report Type: Spontaneous
  Country: US (occurrence: None)
  Receive Date: 20150205
  Receipt Date: 20150205
  Transmission Date: 20150721
  Serious: No
  Sender: FDA-Public Use
  Company Number: None

PATIENT
  Age: 52 Year
  Sex: Female
  Weight: 66.23 kg

DRUGS (5)
  1. VITAMIN D3 [Concomitant]
     Active Substance: CHOLECALCIFEROL
  2. LEVOFLOXACIN. [Suspect]
     Active Substance: LEVOFLOXACIN
     Indication: ABDOMINAL PAIN UPPER
     Dosage: 1 PILL AT BEDTIME TAKEN BY MOUTH
     Route: 048
     Dates: start: 20130813, end: 20130813
  3. BABY ASPIRIN [Concomitant]
     Active Substance: ASPIRIN
  4. ATENOLOL. [Concomitant]
     Active Substance: ATENOLOL
  5. ZEMPLAR [Concomitant]
     Active Substance: PARICALCITOL

REACTIONS (6)
  - Condition aggravated [None]
  - Abdominal distension [None]
  - Muscular weakness [None]
  - Hypersensitivity [None]
  - Abdominal pain [None]
  - Coordination abnormal [None]

NARRATIVE: CASE EVENT DATE: 20130813
